FAERS Safety Report 9458737 (Version 2)
Quarter: 2013Q3

REPORT INFORMATION
  Report Type: Spontaneous
  Country: BR (occurrence: BR)
  Receive Date: 20130814
  Receipt Date: 20130823
  Transmission Date: 20140515
  Serious: Yes (Hospitalization)
  Sender: FDA-Public Use
  Company Number: BR-SANOFI-AVENTIS-2013SA080494

PATIENT
  Age: 9 Year
  Sex: Female

DRUGS (2)
  1. LANTUS [Suspect]
     Indication: TYPE 1 DIABETES MELLITUS
     Dosage: STRENGTH AND FORM IS 3 ML CARTRIDGE
     Route: 058
     Dates: start: 201305
  2. CLONAZEPAM [Concomitant]
     Indication: SOMNOLENCE
     Route: 048
     Dates: start: 2012

REACTIONS (5)
  - Pneumonia [Unknown]
  - Asthma [Unknown]
  - Allergic cough [Unknown]
  - Viral infection [Unknown]
  - Nausea [Unknown]
